FAERS Safety Report 6010032-8 (Version None)
Quarter: 2008Q4

REPORT INFORMATION
  Report Type: 
  Country: None (occurrence: None)
  Receive Date: 20081213
  Receipt Date: 20081208
  Transmission Date: 20090506
  Serious: Yes (Hospitalization, Other)
  Sender: FDA-Public Use
  Company Number: 08H-163-0315347-00

PATIENT
  Age: 35 Year
  Sex: Female
  Weight: 83 kg

DRUGS (18)
  1. HEPARIN SODIUM INJECTION [Suspect]
     Indication: THROMBOSIS PROPHYLAXIS
  2. HEPARIN SODIUM INJECTION [Suspect]
     Indication: ANTICOAGULANT THERAPY
  3. ANGIOTENSIN-CONVERTING ENZYME INHIBITOR (ANGIOTENSIN II ANTAGONISTS) [Concomitant]
  4. BETA-BLOCKER (BETA BLOCKING AGENTS) [Concomitant]
  5. LOOP DIURETIC (DIURETICS) [Concomitant]
  6. POTASSIUM REPLACEMENT (POTASSIUM) [Concomitant]
  7. DIGOXIN [Concomitant]
  8. METOPROLOL TARTRATE [Concomitant]
  9. LISINOPRIL [Concomitant]
  10. FUROSEMIDE [Concomitant]
  11. POTASSIUM CHLORIDE [Concomitant]
  12. ASPIRIN [Concomitant]
  13. LANSOPRAZOLE [Concomitant]
  14. DOCUSATE SODIUM (DOCUSATE SODIUM) [Concomitant]
  15. HYDROCODONE (HYDROCODONE) [Concomitant]
  16. AVETAMINOPHEN (PARACETAMOL) [Concomitant]
  17. MORPHINE SULFATE INJ [Concomitant]
  18. ONDANSETRON HCL [Concomitant]

REACTIONS (23)
  - ACTIVATED PARTIAL THROMBOPLASTIN TIME PROLONGED [None]
  - ATRIAL SEPTAL DEFECT [None]
  - BRAIN NATRIURETIC PEPTIDE INCREASED [None]
  - CARDIOMEGALY [None]
  - CARDIOMYOPATHY [None]
  - CEREBRAL INFARCTION [None]
  - DYSPNOEA EXERTIONAL [None]
  - EMBOLIC STROKE [None]
  - FEMORAL ARTERY OCCLUSION [None]
  - HEPATIC INFARCTION [None]
  - HYPOAESTHESIA [None]
  - INTRACARDIAC THROMBUS [None]
  - ISCHAEMIC STROKE [None]
  - MYOCARDIAL INFARCTION [None]
  - NASOPHARYNGITIS [None]
  - PAIN IN EXTREMITY [None]
  - PERIPHERAL ARTERIAL OCCLUSIVE DISEASE [None]
  - POSTPARTUM DISORDER [None]
  - PULMONARY EMBOLISM [None]
  - PULMONARY OEDEMA [None]
  - RENAL INFARCT [None]
  - SPLENIC INFARCTION [None]
  - VISUAL FIELD DEFECT [None]
